FAERS Safety Report 9546543 (Version 2)
Quarter: 2013Q3

REPORT INFORMATION
  Report Type: Spontaneous
  Country: US (occurrence: US)
  Receive Date: 20130923
  Receipt Date: 20130926
  Transmission Date: 20140515
  Serious: Yes (Death, Other)
  Sender: FDA-Public Use
  Company Number: US-ROCHE-1278657

PATIENT
  Age: 72 Year
  Sex: Female

DRUGS (3)
  1. HERCEPTIN [Suspect]
     Indication: BREAST CANCER
     Route: 065
     Dates: start: 20130821
  2. PERJETA [Suspect]
     Indication: BREAST CANCER
     Route: 065
     Dates: start: 20130821
  3. TAXOTERE [Concomitant]
     Indication: BREAST CANCER
     Route: 065
     Dates: start: 20130821

REACTIONS (4)
  - Respiratory failure [Fatal]
  - Metastatic neoplasm [Fatal]
  - Nausea [Unknown]
  - Pyrexia [Unknown]
